FAERS Safety Report 7831965-3 (Version None)
Quarter: 2011Q4

REPORT INFORMATION
  Report Type: 
  Country: None (occurrence: None)
  Receive Date: 20111021
  Receipt Date: 20111013
  Transmission Date: 20120403
  Serious: Yes (Other)
  Sender: FDA-Public Use
  Company Number: US-ASTRAZENECA-2011SE62112

PATIENT
  Age: 73 Year
  Sex: Female

DRUGS (3)
  1. CRESTOR [Suspect]
     Route: 048
  2. INHALERS [Concomitant]
     Dosage: THREE TIMES A DAY
  3. GENEVA [Concomitant]

REACTIONS (2)
  - ASTHMA [None]
  - ASBESTOSIS [None]
